FAERS Safety Report 25125131 (Version 2)
Quarter: 2025Q2

REPORT INFORMATION
  Report Type: Spontaneous
  Country: US (occurrence: US)
  Receive Date: 20250326
  Receipt Date: 20250530
  Transmission Date: 20250717
  Serious: No
  Sender: INSUD PHARMA
  Company Number: US-INSUD PHARMA-2503US02047

PATIENT

DRUGS (2)
  1. SLYND [Suspect]
     Active Substance: DROSPIRENONE
     Indication: Polycystic ovarian syndrome
     Route: 048
     Dates: start: 2024, end: 2025
  2. XYZAL [Concomitant]
     Active Substance: LEVOCETIRIZINE DIHYDROCHLORIDE
     Indication: Product used for unknown indication

REACTIONS (6)
  - Heavy menstrual bleeding [Recovered/Resolved]
  - Premenstrual syndrome [Recovered/Resolved]
  - Intermenstrual bleeding [Recovered/Resolved]
  - Abnormal withdrawal bleeding [Recovered/Resolved]
  - Amenorrhoea [Recovered/Resolved]
  - Product prescribing issue [Unknown]

NARRATIVE: CASE EVENT DATE: 20240101
